FAERS Safety Report 12885077 (Version 1)
Quarter: 2016Q4

REPORT INFORMATION
  Report Type: Spontaneous
  Country: US (occurrence: US)
  Receive Date: 20161026
  Receipt Date: 20161026
  Transmission Date: 20170207
  Serious: No
  Sender: FDA-Public Use
  Company Number: US-LEO PHARMA-244484

PATIENT
  Sex: Female

DRUGS (4)
  1. LISINOPRIL/HCTZ 10/25 MG [Concomitant]
     Indication: PRODUCT USED FOR UNKNOWN INDICATION
     Route: 048
  2. PICATO [Suspect]
     Active Substance: INGENOL MEBUTATE
     Indication: ACTINIC KERATOSIS
     Route: 061
     Dates: start: 20161021, end: 20161023
  3. AMLODIPINE [Concomitant]
     Active Substance: AMLODIPINE BESYLATE
     Indication: HYPERTENSION
     Route: 048
  4. GLYBURIDE. [Concomitant]
     Active Substance: GLYBURIDE
     Indication: DIABETES MELLITUS
     Route: 048

REACTIONS (6)
  - Asthenia [Recovering/Resolving]
  - Arthralgia [Recovering/Resolving]
  - Agitation [Recovering/Resolving]
  - Application site erythema [Not Recovered/Not Resolved]
  - Blood glucose increased [Recovered/Resolved]
  - Asthenia [Recovering/Resolving]

NARRATIVE: CASE EVENT DATE: 20161021
